FAERS Safety Report 22023640 (Version 1)
Quarter: 2023Q1

REPORT INFORMATION
  Report Type: Spontaneous
  Country: US (occurrence: US)
  Receive Date: 20230223
  Receipt Date: 20230223
  Transmission Date: 20230418
  Serious: Yes (Life-Threatening, Hospitalization)
  Sender: FDA-Public Use
  Company Number: US-drreddys-LIT/USA/23/0161324

PATIENT
  Age: 43 Year
  Sex: Female

DRUGS (22)
  1. DEXAMETHASONE [Suspect]
     Active Substance: DEXAMETHASONE
     Indication: Immune effector cell-associated neurotoxicity syndrome
  2. DEXAMETHASONE [Suspect]
     Active Substance: DEXAMETHASONE
     Indication: Immune-mediated encephalopathy
     Dosage: 10MG EVERY 6 HOURS
  3. DOXORUBICIN HYDROCHLORIDE [Suspect]
     Active Substance: DOXORUBICIN HYDROCHLORIDE
     Indication: Product used for unknown indication
  4. ACETAMINOPHEN [Concomitant]
     Active Substance: ACETAMINOPHEN
     Indication: Product used for unknown indication
  5. ACETAMINOPHEN [Concomitant]
     Active Substance: ACETAMINOPHEN
     Dosage: 10MG EVERY 6 HOURS
  6. CYCLOPHOSPHAMIDE [Concomitant]
     Active Substance: CYCLOPHOSPHAMIDE
     Indication: Product used for unknown indication
     Dosage: 900 MG/M2  ON DAY (-2)
  7. VINCRISTINE [Concomitant]
     Active Substance: VINCRISTINE
     Indication: Product used for unknown indication
  8. DASATINIB [Concomitant]
     Active Substance: DASATINIB
     Indication: Product used for unknown indication
  9. NILOTINIB [Concomitant]
     Active Substance: NILOTINIB
     Indication: Product used for unknown indication
  10. NILOTINIB [Concomitant]
     Active Substance: NILOTINIB
     Dosage: 10MG EVERY 6 HOURS
  11. INOTUZUMAB OZOGAMICIN [Concomitant]
     Active Substance: INOTUZUMAB OZOGAMICIN
     Indication: Product used for unknown indication
  12. INOTUZUMAB OZOGAMICIN [Concomitant]
     Active Substance: INOTUZUMAB OZOGAMICIN
     Dosage: 10MG EVERY 6 HOURS
  13. METHOTREXATE [Concomitant]
     Active Substance: METHOTREXATE
     Indication: Product used for unknown indication
  14. METHOTREXATE [Concomitant]
     Active Substance: METHOTREXATE
     Dosage: 10MG EVERY 6 HOURS
  15. HYDROCORTISONE [Concomitant]
     Active Substance: HYDROCORTISONE
     Indication: Product used for unknown indication
  16. HYDROCORTISONE [Concomitant]
     Active Substance: HYDROCORTISONE
     Dosage: 10MG EVERY 6 HOURS
  17. CYTARABINE [Concomitant]
     Active Substance: CYTARABINE
     Indication: Product used for unknown indication
  18. CYTARABINE [Concomitant]
     Active Substance: CYTARABINE
     Dosage: 10MG EVERY 6 HOURS
  19. FLUDARABINE [Concomitant]
     Active Substance: FLUDARABINE PHOSPHATE
     Indication: Product used for unknown indication
     Dosage: 25 MG/M2 ON DAY (-4)?(-2)
  20. FLUDARABINE [Concomitant]
     Active Substance: FLUDARABINE PHOSPHATE
     Dosage: 10MG EVERY 6 HOURS
  21. Brexucabtagene-autoleucel [Concomitant]
     Indication: Product used for unknown indication
     Dosage: 1 ? 106/KG ON DAY 0.
  22. Brexucabtagene-autoleucel [Concomitant]
     Dosage: 10MG EVERY 6 HOURS

REACTIONS (4)
  - Acute lymphocytic leukaemia recurrent [Recovering/Resolving]
  - Metastases to meninges [Recovering/Resolving]
  - Status epilepticus [Unknown]
  - Drug ineffective for unapproved indication [Unknown]
